FAERS Safety Report 5226348-9 (Version None)
Quarter: 2007Q1

REPORT INFORMATION
  Report Type: 
  Country: None (occurrence: None)
  Receive Date: 20070129
  Receipt Date: 20070115
  Transmission Date: 20070707
  Serious: Yes (Other)
  Sender: FDA-Public Use
  Company Number: 2007EN000005

PATIENT
  Age: 18 Year
  Sex: Female

DRUGS (3)
  1. ADAGEN [Suspect]
     Indication: ADENOSINE DEAMINASE DEFICIENCY
     Dosage: 10 IU/KG; X1; IM, SEE IMAGE
     Route: 030
  2. ADAGEN [Suspect]
     Indication: ADENOSINE DEAMINASE DEFICIENCY
     Dosage: 10 IU/KG; X1; IM, SEE IMAGE
     Route: 030
  3. ADAGEN [Suspect]
     Indication: ADENOSINE DEAMINASE DEFICIENCY
     Dosage: 10 IU/KG; X1; IM, SEE IMAGE
     Route: 030
     Dates: start: 19880101

REACTIONS (4)
  - BRONCHITIS [None]
  - IMMUNE SYSTEM DISORDER [None]
  - INHIBITING ANTIBODIES [None]
  - SINUSITIS [None]
